FAERS Safety Report 9869361 (Version 1)
Quarter: 2014Q1

REPORT INFORMATION
  Report Type: Spontaneous
  Country: US (occurrence: US)
  Receive Date: 20140205
  Receipt Date: 20140205
  Transmission Date: 20141002
  Serious: No
  Sender: FDA-Public Use
  Company Number: US-009507513-1402USA001781

PATIENT
  Age: 26 Year
  Sex: Female
  Weight: 48.98 kg

DRUGS (2)
  1. IMPLANON [Suspect]
     Indication: CONTRACEPTION
     Dosage: UNK
     Route: 059
     Dates: start: 2007, end: 2010
  2. IMPLANON [Suspect]
     Dosage: UNK
     Route: 059
     Dates: start: 2010, end: 20131101

REACTIONS (2)
  - Device difficult to use [Unknown]
  - Nerve injury [Unknown]
